FAERS Safety Report 7449848-X (Version None)
Quarter: 2011Q2

REPORT INFORMATION
  Report Type: 
  Country: None (occurrence: None)
  Receive Date: 20110502
  Receipt Date: 20110321
  Transmission Date: 20111010
  Serious: Yes (Other)
  Sender: FDA-Public Use
  Company Number: US-BAYER-2010-002177

PATIENT
  Age: 35 Year
  Sex: Female
  Weight: 55.3 kg

DRUGS (5)
  1. YAZ [Suspect]
     Indication: PRODUCT USED FOR UNKNOWN INDICATION
     Dosage: UNK
     Dates: start: 20081201, end: 20091101
  2. GABAPENTIN [Concomitant]
     Dosage: 1 DF, TID
     Route: 048
  3. PSYLLIUM [Concomitant]
     Route: 048
  4. WELLBUTRIN [Concomitant]
     Dosage: 1 DF, BID
     Route: 048
  5. ALESSE [Concomitant]
     Indication: CONTRACEPTION

REACTIONS (3)
  - ABDOMINAL PAIN UPPER [None]
  - GALLBLADDER DISORDER [None]
  - CHOLECYSTITIS CHRONIC [None]
